FAERS Safety Report 4766127-X (Version None)
Quarter: 2005Q3

REPORT INFORMATION
  Report Type: 
  Country: None (occurrence: None)
  Receive Date: 20050912
  Receipt Date: 20050311
  Transmission Date: 20060218
  Serious: Yes (Hospitalization, Disabling, Other)
  Sender: FDA-Public Use
  Company Number: US-MERCK-0503USA02573

PATIENT
  Age: 46 Year
  Sex: Male
  Weight: 107 kg

DRUGS (11)
  1. VIOXX [Suspect]
     Indication: GOUT
     Route: 048
     Dates: start: 20010301, end: 20041001
  2. VIOXX [Suspect]
     Route: 048
     Dates: start: 20010301, end: 20041001
  3. VIOXX [Suspect]
     Route: 048
     Dates: start: 20010301, end: 20041001
  4. VIOXX [Suspect]
     Indication: OSTEOARTHRITIS
     Route: 048
     Dates: start: 20010301, end: 20041001
  5. VIOXX [Suspect]
     Route: 048
     Dates: start: 20010301, end: 20041001
  6. VIOXX [Suspect]
     Route: 048
     Dates: start: 20010301, end: 20041001
  7. ASPIRIN [Concomitant]
     Indication: PROPHYLAXIS
     Route: 065
     Dates: start: 20010501
  8. XANAX [Concomitant]
     Route: 065
     Dates: start: 20010301, end: 20010501
  9. VALIUM [Concomitant]
     Route: 065
     Dates: start: 20010301, end: 20010501
  10. EFFEXOR [Concomitant]
     Route: 065
     Dates: start: 20010301, end: 20010501
  11. COUMADIN [Suspect]
     Route: 065

REACTIONS (72)
  - ANTINUCLEAR ANTIBODY POSITIVE [None]
  - AORTIC ANEURYSM [None]
  - AORTIC CALCIFICATION [None]
  - AORTIC DILATATION [None]
  - AORTIC DISORDER [None]
  - AORTIC THROMBOSIS [None]
  - AORTIC VALVE INCOMPETENCE [None]
  - AORTIC VALVE STENOSIS [None]
  - ASTHENIA [None]
  - ATHEROSCLEROSIS [None]
  - BLINDNESS [None]
  - BLOOD PRESSURE SYSTOLIC INCREASED [None]
  - CALCINOSIS [None]
  - CARDIAC DISORDER [None]
  - CARDIAC MURMUR [None]
  - CAROTID ARTERY DISEASE [None]
  - CAROTID ARTERY STENOSIS [None]
  - CEREBRAL ISCHAEMIA [None]
  - CEREBROVASCULAR ACCIDENT [None]
  - CHEST PAIN [None]
  - CHRONIC FATIGUE SYNDROME [None]
  - COGNITIVE DISORDER [None]
  - COMPUTERISED TOMOGRAM ABNORMAL [None]
  - COORDINATION ABNORMAL [None]
  - CORONARY ARTERY DISEASE [None]
  - DEHYDRATION [None]
  - DELIRIUM [None]
  - DEPRESSION [None]
  - DISORIENTATION [None]
  - DIZZINESS [None]
  - DRUG TOXICITY [None]
  - DYSPNOEA [None]
  - EPISTAXIS [None]
  - FATIGUE [None]
  - GASTROINTESTINAL DISORDER [None]
  - GENERALISED ANXIETY DISORDER [None]
  - GOUT [None]
  - HAEMATURIA [None]
  - HEADACHE [None]
  - HYPERHIDROSIS [None]
  - HYPERTENSIVE HEART DISEASE [None]
  - HYPOAESTHESIA [None]
  - INCISION SITE COMPLICATION [None]
  - INSOMNIA [None]
  - INTERNATIONAL NORMALISED RATIO INCREASED [None]
  - ISCHAEMIA [None]
  - LOSS OF CONSCIOUSNESS [None]
  - MEMORY IMPAIRMENT [None]
  - MIGRAINE [None]
  - MIGRAINE WITHOUT AURA [None]
  - MITRAL VALVE INCOMPETENCE [None]
  - MUSCLE SPASMS [None]
  - MUSCULOSKELETAL PAIN [None]
  - MYOCARDIAL INFARCTION [None]
  - NAUSEA [None]
  - NECK PAIN [None]
  - NERVOUSNESS [None]
  - NON-CARDIAC CHEST PAIN [None]
  - PAIN IN EXTREMITY [None]
  - PANIC DISORDER [None]
  - PULMONARY VALVE INCOMPETENCE [None]
  - RHINORRHOEA [None]
  - SINUSITIS [None]
  - SOMNOLENCE [None]
  - SYNCOPE [None]
  - THINKING ABNORMAL [None]
  - THROMBOSIS [None]
  - TRANSIENT ISCHAEMIC ATTACK [None]
  - TRICUSPID VALVE INCOMPETENCE [None]
  - VENTRICULAR HYPERTROPHY [None]
  - VISION BLURRED [None]
  - VISUAL DISTURBANCE [None]
